FAERS Safety Report 7552454-X (Version None)
Quarter: 2011Q2

REPORT INFORMATION
  Report Type: 
  Country: None (occurrence: None)
  Receive Date: 20110616
  Receipt Date: 20110610
  Transmission Date: 20111010
  Serious: Yes (Other)
  Sender: FDA-Public Use
  Company Number: US-PFIZER INC-2011127582

PATIENT
  Age: 3 Year

DRUGS (1)
  1. ZYVOX [Suspect]
     Indication: PNEUMONIA PNEUMOCOCCAL
     Dosage: UNK

REACTIONS (1)
  - APLASTIC ANAEMIA [None]
